FAERS Safety Report 18658069 (Version 2)
Quarter: 2021Q1

REPORT INFORMATION
  Report Type: Spontaneous
  Country: AT (occurrence: AT)
  Receive Date: 20201224
  Receipt Date: 20210303
  Transmission Date: 20210419
  Serious: Yes (Other)
  Sender: FDA-Public Use
  Company Number: AT-BAXTER-2020BAX026502

PATIENT
  Age: 64 Year
  Sex: Male

DRUGS (24)
  1. ENDOXAN ANDQUOT;BAXTERANDQUOT; 1G TROCKENSTECHAMPULLE [Suspect]
     Active Substance: CYCLOPHOSPHAMIDE
     Indication: LYMPHOCYTE ADOPTIVE THERAPY
     Dosage: LYMPHODEPLETING CHEMOTHERAPY
     Route: 065
     Dates: start: 20191223, end: 20191224
  2. RITUXIMAB. [Suspect]
     Active Substance: RITUXIMAB
     Indication: DIFFUSE LARGE B-CELL LYMPHOMA
     Dosage: BRIDGING THERAPY
     Route: 065
     Dates: start: 20191205
  3. CARMUSTINE. [Suspect]
     Active Substance: CARMUSTINE
     Indication: DIFFUSE LARGE B-CELL LYMPHOMA
     Dosage: HIGH DOSE BEAM
     Route: 065
     Dates: start: 201903
  4. RITUXIMAB. [Suspect]
     Active Substance: RITUXIMAB
     Dosage: 6 CYCLES OF R?CHOP
     Route: 065
     Dates: start: 201611, end: 201704
  5. MELPHALAN. [Suspect]
     Active Substance: MELPHALAN
     Indication: DIFFUSE LARGE B-CELL LYMPHOMA
     Dosage: HIGH DOSE BEAM
     Route: 065
     Dates: start: 201903
  6. DOXIL [Suspect]
     Active Substance: DOXORUBICIN HYDROCHLORIDE
     Indication: DIFFUSE LARGE B-CELL LYMPHOMA
     Dosage: 6 CYCLES R?CHOP
     Route: 065
     Dates: start: 201611, end: 201704
  7. RITUXIMAB. [Suspect]
     Active Substance: RITUXIMAB
     Dosage: 2 ADDITIONAL CYCLES R?POLA
     Route: 065
     Dates: start: 202009, end: 202010
  8. CYTARABINE. [Suspect]
     Active Substance: CYTARABINE
     Indication: DIFFUSE LARGE B-CELL LYMPHOMA
     Dosage: HIGH DOSE BEAM
     Route: 065
     Dates: start: 201903
  9. GEMCITABINE. [Suspect]
     Active Substance: GEMCITABINE
     Indication: DIFFUSE LARGE B-CELL LYMPHOMA
     Dosage: 4 CYCLES R?GDP
     Route: 065
     Dates: start: 201812
  10. ENDOXAN ANDQUOT;BAXTERANDQUOT; 1G TROCKENSTECHAMPULLE [Suspect]
     Active Substance: CYCLOPHOSPHAMIDE
     Indication: DIFFUSE LARGE B-CELL LYMPHOMA
     Dosage: 6 CYCLES R?CHOP
     Route: 065
     Dates: start: 201611, end: 201704
  11. ETOPOSIDE. [Suspect]
     Active Substance: ETOPOSIDE
     Indication: DIFFUSE LARGE B-CELL LYMPHOMA
     Dosage: HIGH DOSE BEAM
     Route: 065
     Dates: start: 201903
  12. POLATUZUMAB VEDOTIN. [Suspect]
     Active Substance: POLATUZUMAB VEDOTIN
     Indication: DIFFUSE LARGE B-CELL LYMPHOMA
     Dosage: 4 CYCLES RITUXIMAB/ POLATUZUMAB
     Route: 065
     Dates: start: 202005, end: 202007
  13. RITUXIMAB. [Suspect]
     Active Substance: RITUXIMAB
     Dosage: 4 CYCLES OF RITUXIMAB/POLATUZUMAB
     Route: 065
     Dates: start: 202005, end: 202007
  14. RITUXIMAB. [Suspect]
     Active Substance: RITUXIMAB
     Dosage: 4 CYCLES OF R?GDP
     Route: 065
     Dates: start: 201812
  15. OBINUTUZUMAB. [Suspect]
     Active Substance: OBINUTUZUMAB
     Indication: DIFFUSE LARGE B-CELL LYMPHOMA
     Dosage: SOLUTION?3 CYCLES
     Route: 065
     Dates: start: 201809
  16. VINCRISTINE SULFATE. [Suspect]
     Active Substance: VINCRISTINE SULFATE
     Indication: DIFFUSE LARGE B-CELL LYMPHOMA
     Dosage: 6 CYCLES OF R?CHOP
     Route: 065
     Dates: start: 201611, end: 201704
  17. BENDAMUSTINE [Suspect]
     Active Substance: BENDAMUSTINE
     Indication: DIFFUSE LARGE B-CELL LYMPHOMA
     Dosage: 3 CYCLES
     Route: 065
     Dates: start: 201809
  18. BENDAMUSTINE [Suspect]
     Active Substance: BENDAMUSTINE
     Dosage: BRIDGING THERAPY
     Route: 065
     Dates: start: 20191205
  19. POLATUZUMAB VEDOTIN. [Suspect]
     Active Substance: POLATUZUMAB VEDOTIN
     Dosage: BRIDGING THERAPY
     Route: 065
     Dates: start: 20191205
  20. POLATUZUMAB VEDOTIN. [Suspect]
     Active Substance: POLATUZUMAB VEDOTIN
     Dosage: 2 ADDITIONAL CYCLES R?POLA
     Route: 065
     Dates: start: 202009, end: 202010
  21. PREDNISONE. [Suspect]
     Active Substance: PREDNISONE
     Indication: DIFFUSE LARGE B-CELL LYMPHOMA
     Dosage: 6 CYCLES OF R?CHOP
     Route: 065
     Dates: start: 201611, end: 201704
  22. DEXAMETHASONE. [Suspect]
     Active Substance: DEXAMETHASONE
     Indication: DIFFUSE LARGE B-CELL LYMPHOMA
     Dosage: 4 CYCLES OF R?GDP
     Route: 065
     Dates: start: 201812
  23. CISPLATIN. [Suspect]
     Active Substance: CISPLATIN
     Indication: DIFFUSE LARGE B-CELL LYMPHOMA
     Dosage: 4 CYCLES R?GDP
     Route: 065
     Dates: start: 201812
  24. FLUDARABINE [Suspect]
     Active Substance: FLUDARABINE PHOSPHATE
     Indication: LYMPHOCYTE ADOPTIVE THERAPY
     Dosage: LYMPHODEPLETING CHEMOTHERAPYY
     Route: 065
     Dates: start: 20191223, end: 20191224

REACTIONS (6)
  - Myelosuppression [Unknown]
  - Intentional product use issue [Unknown]
  - Ill-defined disorder [Unknown]
  - Diffuse large B-cell lymphoma [Unknown]
  - Off label use [Unknown]
  - Lymphadenopathy [Unknown]

NARRATIVE: CASE EVENT DATE: 201807
